FAERS Safety Report 4358031-6 (Version None)
Quarter: 2004Q2

REPORT INFORMATION
  Report Type: 
  Country: None (occurrence: None)
  Receive Date: 20040513
  Receipt Date: 20040503
  Transmission Date: 20050107
  Serious: Yes (Hospitalization, Other)
  Sender: FDA-Public Use
  Company Number: 04-04-0522

PATIENT
  Age: 59 Year
  Sex: Female

DRUGS (5)
  1. CLOZAPINE [Suspect]
     Indication: SCHIZOPHRENIA, PARANOID TYPE
     Dosage: 225-400MG  QD  ORAL
     Route: 048
     Dates: start: 20020601, end: 20040303
  2. LITHIUM CARBONATE [Concomitant]
  3. PROZAC [Concomitant]
  4. PROLIXIN [Concomitant]
  5. DEPAKOTE [Concomitant]

REACTIONS (6)
  - ASTERIXIS [None]
  - DELIRIUM [None]
  - ENCEPHALOPATHY [None]
  - MYOCLONUS [None]
  - RESPIRATORY FAILURE [None]
  - SEDATION [None]
